FAERS Safety Report 7413649-9 (Version None)
Quarter: 2011Q2

REPORT INFORMATION
  Report Type: 
  Country: None (occurrence: None)
  Receive Date: 20110413
  Receipt Date: 20110407
  Transmission Date: 20111010
  Serious: Yes (Hospitalization)
  Sender: FDA-Public Use
  Company Number: FR-PFIZER INC-2011076825

PATIENT
  Age: 81 Year
  Sex: Male

DRUGS (9)
  1. CORDARONE [Suspect]
     Dosage: UNK
     Route: 048
     Dates: end: 20110203
  2. ATACAND [Concomitant]
  3. ATENOLOL [Concomitant]
  4. TAHOR [Suspect]
     Dosage: UNK
     Route: 048
     Dates: end: 20110203
  5. OMEPRAZOLE [Concomitant]
  6. KARDEGIC [Concomitant]
  7. FUROSEMIDE [Concomitant]
  8. AMLODIPINE [Concomitant]
  9. COUMADIN [Concomitant]

REACTIONS (2)
  - RESPIRATORY DISTRESS [None]
  - INTERSTITIAL LUNG DISEASE [None]
